FAERS Safety Report 10418301 (Version 6)
Quarter: 2015Q2

REPORT INFORMATION
  Report Type: Spontaneous
  Country: JP (occurrence: JP)
  Receive Date: 20140829
  Receipt Date: 20150522
  Transmission Date: 20150821
  Serious: Yes (Hospitalization)
  Sender: FDA-Public Use
  Company Number: JP-ASTRAZENECA-2014SE53188

PATIENT
  Age: 66 Year
  Sex: Male
  Weight: 81 kg

DRUGS (15)
  1. SEISHOKU [Concomitant]
     Active Substance: SODIUM CHLORIDE
     Indication: NERVE BLOCK
     Dosage: RIGHT FEMORAL NERVE BLOCK: 10 ML, RIGHT SCIATIC NERVE BLOCK: 10 ML
     Route: 053
     Dates: start: 20140716, end: 20140716
  2. LIPITOR [Concomitant]
     Active Substance: ATORVASTATIN CALCIUM
     Indication: HYPERLIPIDAEMIA
     Route: 048
  3. NEXIUM [Concomitant]
     Active Substance: ESOMEPRAZOLE MAGNESIUM
     Indication: GASTRIC MUCOSAL LESION
     Route: 048
  4. SUINY [Concomitant]
     Active Substance: ANAGLIPTIN
     Indication: TYPE 1 DIABETES MELLITUS
     Route: 048
     Dates: start: 20140606
  5. PROPOFOL. [Concomitant]
     Active Substance: PROPOFOL
     Indication: INDUCTION OF ANAESTHESIA
     Dosage: DOSE UNKNOWN
     Route: 042
     Dates: start: 20140716, end: 20140716
  6. ROCURONIUM BROMIDE. [Concomitant]
     Active Substance: ROCURONIUM BROMIDE
     Dosage: DOSE UNKNOWN, ADMINISTRATION FOR THREE TIMES IN TOTAL
     Route: 042
  7. LANTUS [Concomitant]
     Active Substance: INSULIN GLARGINE
     Indication: TYPE 1 DIABETES MELLITUS
     Route: 058
     Dates: start: 20140703
  8. BAYASPIRIN [Concomitant]
     Active Substance: ASPIRIN
     Indication: PLATELET AGGREGATION
     Route: 048
  9. MICOMBI [Concomitant]
     Active Substance: HYDROCHLOROTHIAZIDE\TELMISARTAN
     Indication: HYPERTENSION
     Route: 048
  10. WARFARIN [Concomitant]
     Active Substance: WARFARIN
     Indication: THROMBOSIS
     Route: 048
  11. CIBENOL [Concomitant]
     Active Substance: CIFENLINE
     Indication: ARRHYTHMIA
     Route: 048
  12. DIGOXIN. [Concomitant]
     Active Substance: DIGOXIN
     Indication: ARRHYTHMIA
     Route: 048
  13. SEVOFLURANE. [Concomitant]
     Active Substance: SEVOFLURANE
     Indication: INDUCTION OF ANAESTHESIA
     Dosage: DOSE UNKNOWN
     Route: 055
     Dates: start: 20140716, end: 20140716
  14. ANAPEINE [Suspect]
     Active Substance: ROPIVACAINE HYDROCHLORIDE
     Indication: NERVE BLOCK
     Dosage: RIGHT FEMORAL NERVE BLOCK: 75 MG, RIGHT SCIATIC NERVE BLOCK: 75 MG
     Route: 053
     Dates: start: 20140716, end: 20140716
  15. TANATRIL [Concomitant]
     Active Substance: IMIDAPRIL
     Indication: HYPERTENSION
     Route: 048

REACTIONS (5)
  - Drug effect increased [Recovered/Resolved]
  - Procedural complication [Unknown]
  - Fall [Recovered/Resolved]
  - Monoplegia [Recovered/Resolved]
  - Skin abrasion [Recovered/Resolved]

NARRATIVE: CASE EVENT DATE: 20140716
